FAERS Safety Report 4636370-9 (Version None)
Quarter: 2005Q2

REPORT INFORMATION
  Report Type: 
  Country: None (occurrence: None)
  Receive Date: 20050415
  Receipt Date: 20050126
  Transmission Date: 20051028
  Serious: Yes (Hospitalization)
  Sender: FDA-Public Use
  Company Number: JP-ROCHE-393957

PATIENT
  Age: 42 Year
  Sex: Female

DRUGS (4)
  1. CELLCEPT [Suspect]
     Route: 048
     Dates: start: 20030713, end: 20030917
  2. PROGRAF [Suspect]
     Route: 048
     Dates: start: 20030713, end: 20040329
  3. MEDROL [Concomitant]
     Route: 048
     Dates: start: 20030716
  4. TAKEPRON [Concomitant]
     Route: 048
     Dates: start: 20030713

REACTIONS (3)
  - APLASIA PURE RED CELL [None]
  - ERYTHEMA INFECTIOSUM [None]
  - KIDNEY TRANSPLANT REJECTION [None]
